FAERS Safety Report 16272104 (Version 1)
Quarter: 2019Q2

REPORT INFORMATION
  Report Type: Spontaneous
  Country: FR (occurrence: FR)
  Receive Date: 20190503
  Receipt Date: 20190503
  Transmission Date: 20190711
  Serious: Yes (Disabling)
  Sender: FDA-Public Use
  Company Number: FR-PFM-2019-04868

PATIENT

DRUGS (4)
  1. CISPLATINE ACCORD [Suspect]
     Active Substance: CISPLATIN
     Indication: BRONCHIAL CARCINOMA
     Dosage: 168 MG
     Route: 042
     Dates: start: 20190219
  2. NAVELBINE [Suspect]
     Active Substance: VINORELBINE TARTRATE
     Indication: BRONCHIAL CARCINOMA
     Dosage: 53 MG
     Route: 042
     Dates: start: 20190219
  3. CISPLATINE ACCORD [Suspect]
     Active Substance: CISPLATIN
     Dosage: 168 MG
     Route: 042
     Dates: start: 20190403
  4. NAVELBINE [Suspect]
     Active Substance: VINORELBINE TARTRATE
     Dosage: 53 MG
     Route: 042
     Dates: start: 20190410

REACTIONS (7)
  - Constipation [Recovered/Resolved]
  - Weight decreased [Not Recovered/Not Resolved]
  - Tinnitus [Not Recovered/Not Resolved]
  - Deafness neurosensory [Not Recovered/Not Resolved]
  - Decreased appetite [Not Recovered/Not Resolved]
  - Abdominal distension [Not Recovered/Not Resolved]
  - Neutropenia [Recovered/Resolved]

NARRATIVE: CASE EVENT DATE: 20190308
